FAERS Safety Report 22170222 (Version 3)
Quarter: 2023Q2

REPORT INFORMATION
  Report Type: Spontaneous
  Country: DE (occurrence: DE)
  Receive Date: 20230404
  Receipt Date: 20230427
  Transmission Date: 20230721
  Serious: Yes (Other)
  Sender: FDA-Public Use
  Company Number: DE-PFIZER INC-202300133798

PATIENT
  Age: 60 Year
  Sex: Male
  Weight: 60 kg

DRUGS (20)
  1. GENTAMICIN [Suspect]
     Active Substance: GENTAMICIN
     Indication: Antibiotic therapy
     Route: 065
     Dates: start: 19940627
  2. GENTAMICIN [Suspect]
     Active Substance: GENTAMICIN
     Indication: Staphylococcal infection
  3. TEICOPLANIN [Suspect]
     Active Substance: TEICOPLANIN
     Indication: Staphylococcal infection
     Route: 065
     Dates: start: 19940627
  4. TEICOPLANIN [Suspect]
     Active Substance: TEICOPLANIN
     Indication: Antibiotic therapy
  5. SULBACTAM [Suspect]
     Active Substance: SULBACTAM
     Indication: Staphylococcal infection
     Dosage: UNK
     Route: 065
     Dates: start: 19940627
  6. SULBACTAM [Suspect]
     Active Substance: SULBACTAM
     Indication: Antibiotic therapy
  7. PIPERACILLIN [Suspect]
     Active Substance: PIPERACILLIN
     Indication: Staphylococcal infection
     Route: 065
     Dates: start: 19940627
  8. PIPERACILLIN [Suspect]
     Active Substance: PIPERACILLIN
     Indication: Antibiotic therapy
  9. MELPHALAN [Concomitant]
     Active Substance: MELPHALAN
     Indication: Burkitt^s lymphoma
     Dosage: CHEMOTHERAPY
     Dates: start: 19940614, end: 19940627
  10. ETOPOSIDE [Concomitant]
     Active Substance: ETOPOSIDE
     Indication: Burkitt^s lymphoma
     Dosage: CHEMOTHERAPY
     Dates: start: 19940614, end: 19940627
  11. CIPROFLOXACIN [Concomitant]
     Active Substance: CIPROFLOXACIN
     Indication: Antibiotic prophylaxis
     Dates: start: 1994, end: 19940627
  12. AMPHOTERICIN B [Concomitant]
     Active Substance: AMPHOTERICIN B
     Indication: Oral candidiasis
     Dosage: LOCAL ADMINISTRATION
     Dates: start: 199406
  13. AMPHOTERICIN B [Concomitant]
     Active Substance: AMPHOTERICIN B
     Indication: Oral candidiasis
  14. FLUCONAZOLE [Concomitant]
     Active Substance: FLUCONAZOLE
     Indication: Antifungal prophylaxis
     Dates: start: 199406
  15. PENTAMIDINE [Concomitant]
     Active Substance: PENTAMIDINE
     Indication: Evidence based treatment
     Dates: start: 199406
  16. DEXAMETHASONE [Concomitant]
     Active Substance: DEXAMETHASONE
     Indication: Burkitt^s lymphoma
     Dosage: CHEMOTHERAPY
     Dates: start: 19940614, end: 19940627
  17. ONDANSETRON HYDROCHLORIDE [Concomitant]
     Active Substance: ONDANSETRON HYDROCHLORIDE
     Indication: Antiemetic supportive care
     Dates: start: 19940614
  18. CARMUSTINE [Concomitant]
     Active Substance: CARMUSTINE
     Indication: Burkitt^s lymphoma
     Dosage: CHEMOTHERAPY
     Dates: start: 19940614, end: 19940627
  19. ALLOPURINOL [Concomitant]
     Active Substance: ALLOPURINOL
     Indication: Antiemetic supportive care
     Dates: start: 19940614
  20. CYTARABINE [Concomitant]
     Active Substance: CYTARABINE
     Indication: Burkitt^s lymphoma
     Dosage: CHEMOTHERAPY
     Dates: start: 19940614, end: 19940627

REACTIONS (1)
  - Therapy non-responder [Unknown]

NARRATIVE: CASE EVENT DATE: 19940627
